FAERS Safety Report 7582790-2 (Version None)
Quarter: 2011Q2

REPORT INFORMATION
  Report Type: 
  Country: None (occurrence: None)
  Receive Date: 20110630
  Receipt Date: 20110523
  Transmission Date: 20111010
  Serious: Yes (Hospitalization)
  Sender: FDA-Public Use
  Company Number: US-BAYER-2011-018724

PATIENT
  Age: 33 Year
  Sex: Female
  Weight: 58.503 kg

DRUGS (3)
  1. YAZ [Suspect]
     Indication: CONTRACEPTION
     Dosage: UNK
     Dates: start: 20061027, end: 20090714
  2. YAZ [Suspect]
     Indication: ACNE
  3. MINOCYCLINE HCL [Concomitant]
     Indication: ACNE
     Dosage: 50 MG, BID
     Route: 048
     Dates: start: 20080401

REACTIONS (4)
  - TACHYARRHYTHMIA [None]
  - TACHYCARDIA [None]
  - PALPITATIONS [None]
  - ARRHYTHMIA [None]
